FAERS Safety Report 6249086-2 (Version None)
Quarter: 2009Q2

REPORT INFORMATION
  Report Type: 
  Country: None (occurrence: None)
  Receive Date: 20090624
  Receipt Date: 20090615
  Transmission Date: 20091009
  Serious: Yes (Hospitalization)
  Sender: FDA-Public Use
  Company Number: 09TR001983

PATIENT
  Age: 23 Year
  Sex: Female

DRUGS (4)
  1. NAPROXEN SODIUM [Suspect]
     Indication: GINGIVITIS
     Dosage: 275 MG BID FOR 5 DAYS, ORAL; 275 MG, BID ON D10 POST-OOPERATIVE, ORAL
     Route: 048
  2. DICLOFENAC SODIUM [Suspect]
     Indication: URINARY TRACT INFECTION
     Dosage: 2X75 MG FOR 3 DAYS, ORAL
     Route: 048
  3. PIROXICAM BETADEX (PIROXICAM BETADEX) [Suspect]
     Indication: ABDOMINAL PAIN
     Dosage: 1X20 MG FOR 7 DAYS, ORAL
     Route: 048
  4. UNASYN [Concomitant]

REACTIONS (4)
  - COLITIS [None]
  - LARGE INTESTINE PERFORATION [None]
  - LOWER GASTROINTESTINAL HAEMORRHAGE [None]
  - URINARY TRACT INFECTION [None]
